FAERS Safety Report 16941254 (Version 2)
Quarter: 2019Q4

REPORT INFORMATION
  Report Type: Spontaneous
  Country: NL (occurrence: NL)
  Receive Date: 20191021
  Receipt Date: 20191107
  Transmission Date: 20200122
  Serious: Yes (Hospitalization)
  Sender: FDA-Public Use
  Company Number: NL-PFIZER INC-2019445208

PATIENT
  Age: 62 Year
  Sex: Male

DRUGS (2)
  1. VORICONAZOLE. [Suspect]
     Active Substance: VORICONAZOLE
     Indication: BRONCHOPULMONARY ASPERGILLOSIS
     Dosage: 400 MG, 2X/DAY
  2. TACROLIMUS. [Interacting]
     Active Substance: TACROLIMUS
     Indication: IMMUNOSUPPRESSANT DRUG THERAPY
     Dosage: 0.5 MG, 2X/DAY

REACTIONS (3)
  - Periostitis [Recovered/Resolved]
  - Blood potassium increased [Unknown]
  - Drug interaction [Unknown]
